FAERS Safety Report 13383736 (Version 3)
Quarter: 2017Q4

REPORT INFORMATION
  Report Type: Spontaneous
  Country: US (occurrence: US)
  Receive Date: 20170329
  Receipt Date: 20171220
  Transmission Date: 20180320
  Serious: Yes (Other)
  Sender: FDA-Public Use
  Company Number: US-ELI_LILLY_AND_COMPANY-US201703007257

PATIENT
  Age: 71 Year
  Sex: Female

DRUGS (9)
  1. INSULIN DETEMIR [Suspect]
     Active Substance: INSULIN DETEMIR
     Indication: TYPE 2 DIABETES MELLITUS
     Dosage: 80 U, BID
     Route: 065
  2. INSULIN, HUMAN [Suspect]
     Active Substance: INSULIN HUMAN
     Indication: TYPE 2 DIABETES MELLITUS
     Dosage: 85 U, BID
     Route: 058
     Dates: start: 201704
  3. INSULIN, HUMAN [Suspect]
     Active Substance: INSULIN HUMAN
     Dosage: 90 U, DAILY
     Route: 058
     Dates: start: 201704
  4. INSULIN, HUMAN [Suspect]
     Active Substance: INSULIN HUMAN
     Dosage: 85 U, EACH MORNING (AT BREAKFAST)
     Route: 058
  5. HUMALOG [Suspect]
     Active Substance: INSULIN LISPRO
     Indication: TYPE 2 DIABETES MELLITUS
     Dosage: 40 U, TID
     Route: 058
     Dates: start: 2015
  6. METFORMIN [Suspect]
     Active Substance: METFORMIN HYDROCHLORIDE
     Indication: TYPE 2 DIABETES MELLITUS
     Dosage: 1000 MG, BID
     Route: 065
  7. INSULIN, HUMAN [Suspect]
     Active Substance: INSULIN HUMAN
     Dosage: 90 U, DAILY (BEFORE LUNCH)
     Route: 058
  8. HUMALOG [Suspect]
     Active Substance: INSULIN LISPRO
     Dosage: 40 U, TID
     Route: 058
  9. INSULIN, HUMAN [Suspect]
     Active Substance: INSULIN HUMAN
     Dosage: 80 U, EACH EVENING(AT NIGHT)
     Route: 058

REACTIONS (19)
  - Blood glucose increased [Unknown]
  - Dry eye [Unknown]
  - Abdominal distension [Not Recovered/Not Resolved]
  - Pollakiuria [Not Recovered/Not Resolved]
  - Hepatic pain [Unknown]
  - Dry throat [Unknown]
  - Neuropathy peripheral [Not Recovered/Not Resolved]
  - Poor quality sleep [Not Recovered/Not Resolved]
  - Dry mouth [Not Recovered/Not Resolved]
  - Hepatitis [Unknown]
  - Insulin resistant diabetes [Unknown]
  - Thirst [Not Recovered/Not Resolved]
  - Tongue dry [Not Recovered/Not Resolved]
  - Aptyalism [Not Recovered/Not Resolved]
  - Weight increased [Not Recovered/Not Resolved]
  - Diarrhoea [Unknown]
  - Dry mouth [Unknown]
  - Pollakiuria [Unknown]
  - Oral discomfort [Not Recovered/Not Resolved]

NARRATIVE: CASE EVENT DATE: 201610
